FAERS Safety Report 7045053-X (Version None)
Quarter: 2010Q4

REPORT INFORMATION
  Report Type: 
  Country: None (occurrence: None)
  Receive Date: 20101014
  Receipt Date: 20101002
  Transmission Date: 20110411
  Serious: Yes (Death, Other)
  Sender: FDA-Public Use
  Company Number: CO-GENZYME-CLOF-1001248

PATIENT
  Age: 19 Year
  Sex: Female
  Weight: 46 kg

DRUGS (9)
  1. CLOLAR [Suspect]
     Indication: ACUTE LYMPHOCYTIC LEUKAEMIA
     Dosage: 56 MG, QDX5
     Route: 042
     Dates: start: 20091201, end: 20091201
  2. CYCLOPHOSPHAMIDE [Suspect]
     Indication: ACUTE LYMPHOCYTIC LEUKAEMIA
     Dosage: 600 MG, QDX5
     Route: 042
     Dates: start: 20091201, end: 20091201
  3. ETOPOSIDE [Suspect]
     Indication: ACUTE LYMPHOCYTIC LEUKAEMIA
     Dosage: 140 MG, QDX5
     Route: 042
     Dates: start: 20091201, end: 20091201
  4. ONDANSETRON [Concomitant]
     Indication: PROPHYLAXIS
     Dosage: 16 MG, QDX5
     Route: 065
     Dates: start: 20091201, end: 20091201
  5. DEXAMETHASONE [Concomitant]
     Indication: PROPHYLAXIS
     Dosage: 16 UNK, QDX5
     Route: 065
     Dates: start: 20091201, end: 20091201
  6. TRIMETHOPRIM + SULFAMETHOXAZOLE [Concomitant]
     Indication: PROPHYLAXIS
     Dosage: 960 MG, TIW
     Route: 065
     Dates: start: 20091201, end: 20091201
  7. FLUCONAZOLE [Suspect]
     Indication: PROPHYLAXIS
     Dosage: 200 MG, QD
     Route: 065
     Dates: start: 20091201, end: 20091201
  8. ACYCLOVIR [Concomitant]
     Indication: PROPHYLAXIS
     Dosage: 200 MG, Q12HR
     Route: 065
     Dates: start: 20091201, end: 20091201
  9. PEGFILGRASTIM [Concomitant]
     Indication: PRODUCT USED FOR UNKNOWN INDICATION
     Dosage: 6 MG, ONCE
     Route: 058
     Dates: start: 20091201, end: 20091201

REACTIONS (3)
  - BRONCHOPULMONARY ASPERGILLOSIS [None]
  - FEBRILE NEUTROPENIA [None]
  - KLEBSIELLA BACTERAEMIA [None]
